FAERS Safety Report 8013268-X (Version None)
Quarter: 2011Q4

REPORT INFORMATION
  Report Type: 
  Country: None (occurrence: None)
  Receive Date: 20111229
  Receipt Date: 20111229
  Transmission Date: 20120403
  Serious: Yes (Other)
  Sender: FDA-Public Use
  Company Number: None

PATIENT
  Sex: Male
  Weight: 61.234 kg

DRUGS (1)
  1. LARIAM [Suspect]
     Indication: MALARIA
     Dates: start: 19930301, end: 19930901

REACTIONS (3)
  - POSTPARTUM STRESS DISORDER [None]
  - ANGER [None]
  - DEPRESSION [None]
